FAERS Safety Report 13671315 (Version 1)
Quarter: 2017Q2

REPORT INFORMATION
  Report Type: Spontaneous
  Country: US (occurrence: US)
  Receive Date: 20170620
  Receipt Date: 20170620
  Transmission Date: 20170830
  Serious: No
  Sender: FDA-Public Use
  Company Number: US-ROCHE-634299

PATIENT
  Age: 85 Year
  Sex: Female

DRUGS (3)
  1. ELOXATIN [Suspect]
     Active Substance: OXALIPLATIN
     Indication: COLON CANCER
     Dosage: ROUTE: INTRAVENOUS NOS
     Route: 042
     Dates: start: 20090415, end: 20090415
  2. AVASTIN [Suspect]
     Active Substance: BEVACIZUMAB
     Indication: COLON CANCER
     Dosage: ROUTE: INTRAVENOUS NOS
     Route: 042
     Dates: start: 20090415, end: 20090415
  3. XELODA [Suspect]
     Active Substance: CAPECITABINE
     Indication: COLON CANCER
     Dosage: ROUTE: INTRAVENOUS NOS
     Route: 042
     Dates: start: 20090415, end: 20090415

REACTIONS (4)
  - Chest pain [Unknown]
  - Erythema [Unknown]
  - Dyspnoea [Unknown]
  - Abdominal pain upper [Unknown]

NARRATIVE: CASE EVENT DATE: 20090415
